FAERS Safety Report 7959935-5 (Version None)
Quarter: 2011Q4

REPORT INFORMATION
  Report Type: 
  Country: None (occurrence: None)
  Receive Date: 20111206
  Receipt Date: 20111201
  Transmission Date: 20120403
  Serious: Yes (Death)
  Sender: FDA-Public Use
  Company Number: ES-MERCK-1112ESP00006

PATIENT
  Age: 21 Year
  Sex: Male

DRUGS (14)
  1. DEXKETOPROFEN [Suspect]
     Indication: PROCEDURAL PAIN
     Route: 065
  2. TEICOPLANIN [Suspect]
     Indication: POSTOPERATIVE WOUND INFECTION
     Route: 065
  3. LEVETIRACETAM [Suspect]
     Indication: CONVULSION
     Route: 065
  4. LEVOFLOXACIN [Suspect]
     Indication: POSTOPERATIVE WOUND INFECTION
     Route: 065
  5. CANCIDAS [Suspect]
     Indication: BLOOD CULTURE POSITIVE
     Route: 065
  6. CANCIDAS [Suspect]
     Indication: CANDIDIASIS
     Route: 065
  7. AMIKACIN [Suspect]
     Indication: POSTOPERATIVE WOUND INFECTION
     Route: 065
  8. PIPERACILLIN AND TAZOBACTAM [Suspect]
     Route: 065
  9. LINEZOLID [Suspect]
     Route: 065
  10. CEFAZOLIN [Suspect]
     Indication: PROCEDURAL PAIN
     Route: 065
  11. MEROPENEM [Suspect]
     Indication: POSTOPERATIVE WOUND INFECTION
     Route: 065
  12. PREDNISONE TAB [Suspect]
     Indication: GRAFT VERSUS HOST DISEASE
     Route: 065
  13. TRAMADOL HCL [Suspect]
     Indication: PROCEDURAL PAIN
     Route: 065
  14. ACYCLOVIR [Suspect]
     Indication: EVIDENCE BASED TREATMENT
     Route: 065

REACTIONS (2)
  - DRUG RASH WITH EOSINOPHILIA AND SYSTEMIC SYMPTOMS [None]
  - MULTI-ORGAN FAILURE [None]
